FAERS Safety Report 7543787-1 (Version None)
Quarter: 2011Q2

REPORT INFORMATION
  Report Type: 
  Country: None (occurrence: None)
  Receive Date: 20110613
  Receipt Date: 20110602
  Transmission Date: 20111010
  Serious: Yes (Hospitalization, Other)
  Sender: FDA-Public Use
  Company Number: US-PFIZER INC-2002059274

PATIENT
  Age: 60 Year
  Sex: Male

DRUGS (10)
  1. BENAZEPRIL HYDROCHLORIDE [Suspect]
     Dosage: 40 MG, 1X/DAY
     Route: 065
     Dates: end: 20010307
  2. WARFARIN SODIUM [Suspect]
     Dosage: 7.5 MG, 1X/DAY
     Route: 065
     Dates: end: 20010307
  3. ATORVASTATIN [Interacting]
     Indication: HYPERLIPIDAEMIA
     Dosage: 20 MG, 1X/DAY
     Route: 048
     Dates: end: 20010307
  4. METOPROLOL TARTRATE [Suspect]
     Dosage: 100 MG, 2X/DAY
     Route: 065
     Dates: end: 20010307
  5. HUMULIN 70/30 [Concomitant]
     Dosage: 70/30, 2X/DAY
  6. DIGOXIN [Concomitant]
     Dosage: 0.125 MG, 1X/DAY
  7. ACETYLSALICYLIC ACID [Concomitant]
     Dosage: 325 MG, 1X/DAY
  8. NITROGLYCERIN [Suspect]
     Dosage: AS NEEDED
     Route: 060
     Dates: end: 20010307
  9. DILTIAZEM HCL [Interacting]
     Indication: ATRIAL FIBRILLATION
     Dosage: 360 MG, 1X/DAY
     Route: 048
     Dates: start: 20010201, end: 20010307
  10. FUROSEMIDE [Concomitant]
     Dosage: 40 MG, 2X/DAY

REACTIONS (8)
  - RHABDOMYOLYSIS [None]
  - MYOPATHY [None]
  - DRUG INTERACTION [None]
  - RENAL FAILURE [None]
  - HEPATITIS ACUTE [None]
  - ATRIAL FIBRILLATION [None]
  - COAGULOPATHY [None]
  - ATRIOVENTRICULAR BLOCK COMPLETE [None]
